FAERS Safety Report 18656235 (Version 1)
Quarter: 2020Q4

REPORT INFORMATION
  Report Type: Spontaneous
  Country: JP (occurrence: JP)
  Receive Date: 20201223
  Receipt Date: 20201223
  Transmission Date: 20210114
  Serious: Yes (Hospitalization)
  Sender: FDA-Public Use
  Company Number: JP-OTSUKA-2020_027894

PATIENT
  Age: 3 Decade
  Sex: Female

DRUGS (1)
  1. ABILIFY MAINTENA [Suspect]
     Active Substance: ARIPIPRAZOLE
     Indication: SCHIZOPHRENIA
     Dosage: 400/SHOT
     Route: 030

REACTIONS (3)
  - Maternal exposure during pregnancy [Unknown]
  - Psychiatric symptom [Unknown]
  - Abortion induced [Unknown]
